FAERS Safety Report 13325356 (Version 3)
Quarter: 2017Q2

REPORT INFORMATION
  Report Type: Spontaneous
  Country: US (occurrence: US)
  Receive Date: 20170310
  Receipt Date: 20170417
  Transmission Date: 20170830
  Serious: No
  Sender: FDA-Public Use
  Company Number: US-PFIZER INC-2017106585

PATIENT
  Age: 83 Year
  Sex: Male

DRUGS (3)
  1. XELJANZ XR [Interacting]
     Active Substance: TOFACITINIB CITRATE
     Dosage: UNK
  2. ERIVEDGE [Interacting]
     Active Substance: VISMODEGIB
     Indication: SKIN CANCER
     Dosage: 150 MG, UNK
  3. XELJANZ XR [Suspect]
     Active Substance: TOFACITINIB CITRATE
     Indication: RHEUMATOID ARTHRITIS
     Dosage: 11 MG, DAILY (MORNING)

REACTIONS (2)
  - Drug interaction [Unknown]
  - Drug ineffective [Unknown]
